FAERS Safety Report 7935889-2 (Version None)
Quarter: 2011Q4

REPORT INFORMATION
  Report Type: 
  Country: None (occurrence: None)
  Receive Date: 20111123
  Receipt Date: 20111116
  Transmission Date: 20120403
  Serious: Yes (Hospitalization)
  Sender: FDA-Public Use
  Company Number: US-BAYER-2011-076837

PATIENT
  Sex: Female

DRUGS (1)
  1. NEXAVAR [Suspect]
     Indication: RENAL CANCER
     Dosage: 400 MG, BID
     Route: 048
     Dates: start: 20110807

REACTIONS (8)
  - STOMATITIS [None]
  - MALAISE [None]
  - RENAL PAIN [None]
  - PRURITUS [None]
  - SKIN BURNING SENSATION [None]
  - RASH PRURITIC [None]
  - PYREXIA [None]
  - ERYTHEMA [None]
